FAERS Safety Report 14385827 (Version 2)
Quarter: 2020Q4

REPORT INFORMATION
  Report Type: Spontaneous
  Country: US (occurrence: US)
  Receive Date: 20180115
  Receipt Date: 20201223
  Transmission Date: 20210113
  Serious: No
  Sender: FDA-Public Use
  Company Number: US-BIOGEN-2017BI00437343

PATIENT
  Sex: Female

DRUGS (3)
  1. TECFIDERA [Suspect]
     Active Substance: DIMETHYL FUMARATE
     Indication: MULTIPLE SCLEROSIS
     Route: 050
     Dates: start: 20140820
  2. TECFIDERA [Suspect]
     Active Substance: DIMETHYL FUMARATE
     Dosage: STARTING DOSE
     Route: 050
     Dates: start: 2014, end: 2014
  3. TECFIDERA [Suspect]
     Active Substance: DIMETHYL FUMARATE
     Dosage: MAINTENANCE DOSE
     Route: 050
     Dates: start: 2014, end: 2014

REACTIONS (10)
  - Urticaria [Recovered/Resolved]
  - Rash [Recovered/Resolved]
  - Burning sensation [Recovered/Resolved]
  - Decreased immune responsiveness [Not Recovered/Not Resolved]
  - Asthenia [Unknown]
  - Sensory disturbance [Unknown]
  - Flushing [Unknown]
  - Pruritus [Unknown]
  - Gastrointestinal disorder [Unknown]
  - Drug intolerance [Unknown]
